FAERS Safety Report 5528947-3 (Version None)
Quarter: 2007Q4

REPORT INFORMATION
  Report Type: 
  Country: None (occurrence: None)
  Receive Date: 20071129
  Receipt Date: 20071116
  Transmission Date: 20080405
  Serious: Yes (Other)
  Sender: FDA-Public Use
  Company Number: JP-AMGEN-US247057

PATIENT
  Sex: Male
  Weight: 2.61 kg

DRUGS (7)
  1. ENBREL [Suspect]
     Indication: RHEUMATOID ARTHRITIS
     Route: 064
     Dates: start: 20050908, end: 20070830
  2. LOXONIN [Concomitant]
     Indication: RHEUMATOID ARTHRITIS
     Route: 064
     Dates: start: 20050908, end: 20050925
  3. LOXONIN [Concomitant]
     Route: 064
     Dates: start: 20050926, end: 20061201
  4. PREDNISOLONE [Concomitant]
     Indication: RHEUMATOID ARTHRITIS
     Route: 064
     Dates: start: 20050908, end: 20050925
  5. PREDNISOLONE [Concomitant]
     Route: 064
     Dates: start: 20050926, end: 20060801
  6. PREDNISOLONE [Concomitant]
     Route: 064
     Dates: start: 20060802, end: 20070510
  7. PREDNISOLONE [Concomitant]
     Route: 064
     Dates: start: 20070511

REACTIONS (1)
  - NEONATAL ASPHYXIA [None]
